FAERS Safety Report 10006118 (Version 2)
Quarter: 2014Q2

REPORT INFORMATION
  Report Type: Spontaneous
  Country: GR (occurrence: GR)
  Receive Date: 20140313
  Receipt Date: 20140625
  Transmission Date: 20141212
  Serious: Yes (Other)
  Sender: FDA-Public Use
  Company Number: GR-SA-2014SA028299

PATIENT
  Age: 67 Year
  Sex: Female

DRUGS (4)
  1. COAPROVEL [Suspect]
     Indication: PRODUCT USED FOR UNKNOWN INDICATION
     Route: 065
     Dates: start: 201305
  2. VITAMIN D [Concomitant]
  3. RYTMONORM [Concomitant]
     Dosage: LAST 10 MONTHS
  4. LOPRESSOR [Concomitant]

REACTIONS (1)
  - Haemorrhage [Unknown]
